FAERS Safety Report 18855185 (Version 1)
Quarter: 2021Q1

REPORT INFORMATION
  Report Type: Spontaneous
  Country: AU (occurrence: AU)
  Receive Date: 20210205
  Receipt Date: 20210205
  Transmission Date: 20210420
  Serious: Yes (Other)
  Sender: FDA-Public Use
  Company Number: AU-GLAXOSMITHKLINE-AUCH2021APC002342

PATIENT
  Age: 40 Year
  Sex: Male

DRUGS (6)
  1. CISPLATIN. [Suspect]
     Active Substance: CISPLATIN
     Indication: PRODUCT USED FOR UNKNOWN INDICATION
  2. CARBOPLATIN. [Suspect]
     Active Substance: CARBOPLATIN
     Indication: PRODUCT USED FOR UNKNOWN INDICATION
  3. IBUPROFEN. [Suspect]
     Active Substance: IBUPROFEN
     Indication: PRODUCT USED FOR UNKNOWN INDICATION
  4. GEMCITABINE HYDROCHLORIDE. [Suspect]
     Active Substance: GEMCITABINE HYDROCHLORIDE
     Indication: PRODUCT USED FOR UNKNOWN INDICATION
  5. BACILLUS CALMETTE GUERIN [Suspect]
     Active Substance: BCG VACCINE
     Indication: PRODUCT USED FOR UNKNOWN INDICATION
  6. MITOMYCIN. [Suspect]
     Active Substance: MITOMYCIN
     Indication: PRODUCT USED FOR UNKNOWN INDICATION

REACTIONS (18)
  - Metastases to central nervous system [Unknown]
  - Cough [Unknown]
  - Lymphadenectomy [Unknown]
  - Somnolence [Unknown]
  - Fatigue [Unknown]
  - Cauda equina syndrome [Unknown]
  - Metastases to bone [Unknown]
  - Chest pain [Unknown]
  - Disease progression [Unknown]
  - Lymphadenopathy mediastinal [Unknown]
  - Pulmonary mass [Unknown]
  - Transitional cell carcinoma recurrent [Unknown]
  - Polyuria [Unknown]
  - Pulmonary embolism [Unknown]
  - Hyponatraemia [Unknown]
  - Antidiuretic hormone abnormality [Unknown]
  - Dyspnoea [Unknown]
  - Nausea [Unknown]
